FAERS Safety Report 6779809-5 (Version None)
Quarter: 2010Q2

REPORT INFORMATION
  Report Type: 
  Country: None (occurrence: None)
  Receive Date: 20100618
  Receipt Date: 20100609
  Transmission Date: 20101027
  Serious: Yes (Hospitalization)
  Sender: FDA-Public Use
  Company Number: FR-JNJFOC-20100603221

PATIENT
  Age: 12 Year
  Sex: Female

DRUGS (3)
  1. REMICADE [Suspect]
     Indication: CROHN'S DISEASE
     Route: 042
  2. AERIUS [Concomitant]
     Indication: SEASONAL ALLERGY
  3. NASONEX [Concomitant]
     Indication: SEASONAL ALLERGY

REACTIONS (6)
  - DYSPNOEA [None]
  - HYPOXIA [None]
  - INFUSION RELATED REACTION [None]
  - MALAISE [None]
  - URTICARIA [None]
  - VOMITING [None]
